FAERS Safety Report 20515907 (Version 2)
Quarter: 2022Q1

REPORT INFORMATION
  Report Type: Spontaneous
  Country: US (occurrence: US)
  Receive Date: 20220225
  Receipt Date: 20220302
  Transmission Date: 20220424
  Serious: No
  Sender: FDA-Public Use
  Company Number: US-UNITED THERAPEUTICS-UNT-2022-004219

PATIENT
  Age: 71 Year
  Sex: Male
  Weight: 87.075 kg

DRUGS (2)
  1. TYVASO [Suspect]
     Active Substance: TREPROSTINIL
     Indication: Pulmonary arterial hypertension
     Dosage: UNK
     Dates: start: 20211014
  2. TYVASO [Suspect]
     Active Substance: TREPROSTINIL
     Dosage: 18-72 ?G, QID

REACTIONS (5)
  - Oxygen saturation decreased [Recovering/Resolving]
  - Dyspnoea [Unknown]
  - Dizziness postural [Unknown]
  - Headache [Unknown]
  - Device malfunction [Unknown]

NARRATIVE: CASE EVENT DATE: 20220201
